FAERS Safety Report 21340562 (Version 2)
Quarter: 2022Q4

REPORT INFORMATION
  Report Type: Spontaneous
  Country: BR (occurrence: BR)
  Receive Date: 20220916
  Receipt Date: 20221003
  Transmission Date: 20230113
  Serious: Yes (Other)
  Sender: FDA-Public Use
  Company Number: BR-COLLEGIUM PHARMACEUTICAL, INC.-20220900216

PATIENT

DRUGS (2)
  1. NUCYNTA ER [Suspect]
     Active Substance: TAPENTADOL HYDROCHLORIDE
     Indication: Pain
     Dosage: 50 MILLIGRAM, UNKNOWN
     Route: 065
  2. TYLEX [CODEINE PHOSPHATE;PARACETAMOL] [Concomitant]
     Indication: Pain
     Dosage: UNKNOWN, UNKNOWN

REACTIONS (3)
  - Chest pain [Unknown]
  - Flatulence [Unknown]
  - Constipation [Unknown]
